FAERS Safety Report 9369603 (Version 1)
Quarter: 2013Q2

REPORT INFORMATION
  Report Type: Spontaneous
  Country: US (occurrence: US)
  Receive Date: 20130626
  Receipt Date: 20130626
  Transmission Date: 20140414
  Serious: No
  Sender: FDA-Public Use
  Company Number: US-MYLANLABS-2013S1000089

PATIENT
  Sex: Male

DRUGS (2)
  1. PERFOROMIST (FORMOTEROL FUMARATE) INHALATION SOLUTION [Suspect]
     Route: 055
     Dates: start: 2007
  2. COMBIVENT [Concomitant]

REACTIONS (1)
  - Dyspnoea [Not Recovered/Not Resolved]
